FAERS Safety Report 22203377 (Version 1)
Quarter: 2023Q2

REPORT INFORMATION
  Report Type: Spontaneous
  Country: US (occurrence: None)
  Receive Date: 20230412
  Receipt Date: 20230412
  Transmission Date: 20230722
  Serious: Yes (unspecified)
  Sender: FDA-Public Use
  Company Number: None

PATIENT
  Age: 49 Year
  Sex: Female

DRUGS (1)
  1. ZARXIO [Suspect]
     Active Substance: FILGRASTIM-SNDZ
     Indication: Breast cancer female
     Dosage: FREQUENCY : DAILY;?
     Route: 058
     Dates: start: 202303, end: 202304

REACTIONS (5)
  - Platelet count decreased [None]
  - Alanine aminotransferase increased [None]
  - Blood alkaline phosphatase increased [None]
  - White blood cell count decreased [None]
  - Bone pain [None]

NARRATIVE: CASE EVENT DATE: 20230412
